FAERS Safety Report 15975354 (Version 1)
Quarter: 2019Q1

REPORT INFORMATION
  Report Type: Spontaneous
  Country: CN (occurrence: CN)
  Receive Date: 20190218
  Receipt Date: 20190218
  Transmission Date: 20190418
  Serious: Yes (Other)
  Sender: FDA-Public Use
  Company Number: CN-ASTELLAS-2019US005992

PATIENT
  Age: 73 Year
  Sex: Male

DRUGS (11)
  1. ETOPOSIDE. [Concomitant]
     Active Substance: ETOPOSIDE
     Dosage: 100 MG, UNKNOWN FREQ. (DAY 1 TO DAY 3)
     Route: 041
     Dates: start: 20170623
  2. DOCETAXEL. [Concomitant]
     Active Substance: DOCETAXEL
     Dosage: UNK, UNKNOWN FREQ.
     Route: 065
     Dates: start: 20140322
  3. CISPLATIN. [Concomitant]
     Active Substance: CISPLATIN
     Indication: PRODUCT USED FOR UNKNOWN INDICATION
     Dosage: UNK UNK, UNKNOWN FREQ.
     Route: 065
     Dates: start: 20121105, end: 20130304
  4. TARCEVA [Suspect]
     Active Substance: ERLOTINIB HYDROCHLORIDE
     Indication: LUNG NEOPLASM MALIGNANT
     Dosage: UNK, UNKNOWN FREQ.
     Route: 065
     Dates: start: 201410
  5. PEMETREXED                         /01493902/ [Concomitant]
     Active Substance: PEMETREXED
     Indication: LUNG NEOPLASM MALIGNANT
     Dosage: DAY 1. SUBSEQUENT DOSE ON 16/APR/2016, 09/SEP/2016 AND 31/MAY/2016.
     Route: 065
     Dates: start: 20160323
  6. DOCETAXEL. [Concomitant]
     Active Substance: DOCETAXEL
     Indication: PRODUCT USED FOR UNKNOWN INDICATION
     Dosage: UNK UNK, UNKNOWN FREQ.
     Route: 065
     Dates: start: 20121105, end: 20130110
  7. ETOPOSIDE. [Concomitant]
     Active Substance: ETOPOSIDE
     Indication: PRODUCT USED FOR UNKNOWN INDICATION
     Dosage: 150 MG, UNKNOWN FREQ. (DAY 1 TO DAY 3)
     Route: 041
     Dates: start: 20170519
  8. CISPLATIN. [Concomitant]
     Active Substance: CISPLATIN
     Dosage: UNK UNK, UNKNOWN FREQ.
     Route: 065
     Dates: start: 20140322
  9. CARBOPLATIN. [Concomitant]
     Active Substance: CARBOPLATIN
     Indication: LUNG NEOPLASM MALIGNANT
     Dosage: DAY1. SUBSEQUENT DOSES ON: 16/APR/2016, 09/SEP/2016 AND 31/MAY/2016, 19/MAY/2017
     Route: 065
     Dates: start: 20160323
  10. CARBOPLATIN. [Concomitant]
     Active Substance: CARBOPLATIN
     Route: 041
     Dates: start: 20170623
  11. GEMCITABINE [Concomitant]
     Active Substance: GEMCITABINE\GEMCITABINE HYDROCHLORIDE
     Indication: PRODUCT USED FOR UNKNOWN INDICATION
     Dosage: UNK UNK, UNKNOWN FREQ.
     Route: 065

REACTIONS (18)
  - Dyspnoea [Unknown]
  - Neck pain [Unknown]
  - Pain [Unknown]
  - Muscular weakness [Recovering/Resolving]
  - Small cell lung cancer [Unknown]
  - Bone marrow failure [Unknown]
  - Atrial fibrillation [Unknown]
  - Infection [Recovering/Resolving]
  - Discomfort [Unknown]
  - Swelling [Unknown]
  - Hemiplegia [Unknown]
  - Chest discomfort [Unknown]
  - Musculoskeletal pain [Unknown]
  - Decreased appetite [Unknown]
  - Renal impairment [Unknown]
  - Abdominal distension [Unknown]
  - Joint swelling [Unknown]
  - Back pain [Unknown]

NARRATIVE: CASE EVENT DATE: 20171021
